FAERS Safety Report 16905965 (Version 1)
Quarter: 2019Q4

REPORT INFORMATION
  Report Type: Report from Study
  Country: None (occurrence: CA)
  Receive Date: 20191010
  Receipt Date: 20191010
  Transmission Date: 20200122
  Serious: Yes (Other)
  Sender: FDA-Public Use
  Company Number: CA-ABBVIE-19K-028-2956097-00

PATIENT
  Sex: Female

DRUGS (1)
  1. HUMIRA [Suspect]
     Active Substance: ADALIMUMAB
     Indication: CROHN^S DISEASE
     Route: 058
     Dates: start: 20150107

REACTIONS (10)
  - Sternal fracture [Unknown]
  - Ulcer [Unknown]
  - Drug level fluctuating [Unknown]
  - Road traffic accident [Unknown]
  - Eczema [Unknown]
  - Wrist fracture [Unknown]
  - Diarrhoea [Unknown]
  - Ileal stenosis [Unknown]
  - Defaecation urgency [Unknown]
  - Inflammation [Unknown]
